FAERS Safety Report 9135193 (Version 1)
Quarter: 2013Q1

REPORT INFORMATION
  Report Type: Spontaneous
  Country: US (occurrence: US)
  Receive Date: 20130304
  Receipt Date: 20130304
  Transmission Date: 20140127
  Serious: No
  Sender: FDA-Public Use
  Company Number: US-COVIDIEN/TYCO HEALTHCARE/MALLINCKRODT-T201203545

PATIENT
  Age: 84 Year
  Sex: Female
  Weight: 102.4 kg

DRUGS (14)
  1. RESTORIL [Suspect]
     Indication: INSOMNIA
     Dosage: 15 MG, 2 CAPSULES AT BEDTIME
     Route: 048
     Dates: start: 201109
  2. ALLEGRA [Concomitant]
     Indication: HYPERSENSITIVITY
     Dosage: 180 MG
  3. PROZAC [Concomitant]
     Dosage: 40 MG
  4. FOLIC ACID [Concomitant]
     Dosage: 1 MG
  5. GLYBURIDE [Concomitant]
     Dosage: 5 MG
  6. HYDROCHLOROTHIAZIDE [Concomitant]
     Dosage: UNK
  7. LISINOPRIL [Concomitant]
     Dosage: UNK
  8. FISH OIL [Concomitant]
     Dosage: UNK
  9. METFORMIN [Concomitant]
     Dosage: UNK
  10. SIMVASTATIN [Concomitant]
     Dosage: UNK
  11. ZYRTEC [Concomitant]
     Dosage: UNK
  12. WARFARIN [Concomitant]
     Dosage: UNK
  13. MULTIVITAMIN                       /00097801/ [Concomitant]
     Dosage: UNK
  14. VITAMIN B12                        /00056201/ [Concomitant]
     Dosage: UNK

REACTIONS (1)
  - Dysgeusia [Not Recovered/Not Resolved]
